FAERS Safety Report 23415989 (Version 1)
Quarter: 2024Q1

REPORT INFORMATION
  Report Type: Spontaneous
  Country: US (occurrence: None)
  Receive Date: 20240117
  Receipt Date: 20240117
  Transmission Date: 20240409
  Serious: Yes (Disabling, Other)
  Sender: FDA-Public Use
  Company Number: None

PATIENT
  Age: 75 Year
  Sex: Female
  Weight: 78.75 kg

DRUGS (16)
  1. ACTIQ [Suspect]
     Active Substance: FENTANYL CITRATE
     Indication: Pain
     Dosage: 1 MCG EVERY 4 HOURS  ?
     Route: 050
  2. OXYCODONE [Concomitant]
     Active Substance: OXYCODONE
  3. ATORVASTATIN [Concomitant]
     Active Substance: ATORVASTATIN
  4. HYDROXYZINE [Concomitant]
     Active Substance: HYDROXYZINE HYDROCHLORIDE
  5. FOLIC ACID [Concomitant]
     Active Substance: FOLIC ACID
  6. DILTIAZEM [Concomitant]
     Active Substance: DILTIAZEM
  7. CITALOPRAM [Concomitant]
     Active Substance: CITALOPRAM HYDROBROMIDE
  8. OXYBUTYNIN [Concomitant]
     Active Substance: OXYBUTYNIN\OXYBUTYNIN CHLORIDE
  9. LEVOTHYROXINE [Concomitant]
     Active Substance: LEVOTHYROXINE\LEVOTHYROXINE SODIUM
  10. TAMOXIFEN [Concomitant]
     Active Substance: TAMOXIFEN
  11. TRAZODONE [Concomitant]
     Active Substance: TRAZODONE HYDROCHLORIDE
  12. ALENDRONATE [Concomitant]
     Active Substance: ALENDRONATE SODIUM
  13. FISH OIL [Concomitant]
  14. CENTRUM SILVER MULTI VITAMIN [Concomitant]
  15. MAGNESIUM [Concomitant]
  16. CALCIUM\CHOLECALCIFEROL [Concomitant]
     Active Substance: CALCIUM\CHOLECALCIFEROL

REACTIONS (3)
  - Dental caries [None]
  - Dental caries [None]
  - Tooth extraction [None]

NARRATIVE: CASE EVENT DATE: 20040101
